FAERS Safety Report 21746504 (Version 1)
Quarter: 2022Q4

REPORT INFORMATION
  Report Type: Spontaneous
  Country: US (occurrence: None)
  Receive Date: 20221216
  Receipt Date: 20221216
  Transmission Date: 20230113
  Serious: No
  Sender: FDA-Public Use
  Company Number: None

PATIENT
  Age: 73 Year
  Sex: Male
  Weight: 76.61 kg

DRUGS (21)
  1. VOTRIENT [Suspect]
     Active Substance: PAZOPANIB HYDROCHLORIDE
     Indication: Soft tissue sarcoma
     Dosage: FREQUENCY : DAILY;?
     Route: 048
     Dates: start: 202211
  2. ADRIAMYCIN [Concomitant]
     Active Substance: DOXORUBICIN HYDROCHLORIDE
  3. ATORVASTATIN [Concomitant]
     Active Substance: ATORVASTATIN
  4. AVODART [Concomitant]
     Active Substance: DUTASTERIDE
  5. BUPRENORPHINE [Concomitant]
     Active Substance: BUPRENORPHINE
  6. CALCIUM CARBONATE [Concomitant]
     Active Substance: CALCIUM CARBONATE
  7. VITAMIN D3 [Concomitant]
     Active Substance: CHOLECALCIFEROL
  8. CATHFLO ANTVASE [Concomitant]
  9. DECADRON [Concomitant]
     Active Substance: DEXAMETHASONE
  10. DUTASTERIDE [Concomitant]
     Active Substance: DUTASTERIDE
  11. FOSAPREPITANT [Concomitant]
     Active Substance: FOSAPREPITANT
  12. SENOKOT [Concomitant]
     Active Substance: SENNOSIDES
  13. GAVILYTE G [Concomitant]
     Active Substance: POLYETHYLENE GLYCOL 3350\POTASSIUM CHLORIDE\SODIUM BICARBONATE\SODIUM CHLORIDE\SODIUM SULFATE
  14. GOLYTELY [Concomitant]
     Active Substance: POLYETHYLENE GLYCOL 3350\POTASSIUM CHLORIDE\SODIUM BICARBONATE\SODIUM CHLORIDE\SODIUM SULFATE
  15. MEDROL [Concomitant]
     Active Substance: METHYLPREDNISOLONE
  16. VITAMINS [Concomitant]
     Active Substance: VITAMINS
  17. OXYCODONE [Concomitant]
     Active Substance: OXYCODONE
  18. PALONESTRON [Concomitant]
  19. HIGH DENSITY POLYETHYLENE [Concomitant]
     Active Substance: HIGH DENSITY POLYETHYLENE
  20. SYNTHROID [Concomitant]
     Active Substance: LEVOTHYROXINE SODIUM
  21. ZINECARD [Concomitant]
     Active Substance: DEXRAZOXANE HYDROCHLORIDE

REACTIONS (1)
  - Hospice care [None]
